FAERS Safety Report 6870704-X (Version None)
Quarter: 2010Q3

REPORT INFORMATION
  Report Type: 
  Country: None (occurrence: None)
  Receive Date: 20100723
  Receipt Date: 20100224
  Transmission Date: 20110219
  Serious: No
  Sender: FDA-Public Use
  Company Number: A0846377A

PATIENT
  Age: 50 Year
  Sex: Female

DRUGS (1)
  1. OLUX [Suspect]
     Indication: PSORIASIS
     Route: 061

REACTIONS (3)
  - HUNGER [None]
  - INCREASED APPETITE [None]
  - WEIGHT LOSS POOR [None]
